FAERS Safety Report 15597274 (Version 1)
Quarter: 2018Q4

REPORT INFORMATION
  Report Type: Report from Study
  Country: US (occurrence: US)
  Receive Date: 20181108
  Receipt Date: 20181108
  Transmission Date: 20190205
  Serious: Yes (Hospitalization, Other)
  Sender: FDA-Public Use
  Company Number: US-EMD SERONO-7217255

PATIENT
  Age: 58 Year
  Sex: Male

DRUGS (3)
  1. INSULIN [Concomitant]
     Active Substance: INSULIN NOS
     Indication: TYPE 1 DIABETES MELLITUS
  2. ALEVE [Concomitant]
     Active Substance: NAPROXEN SODIUM
     Indication: PREMEDICATION
  3. REBIF [Suspect]
     Active Substance: INTERFERON BETA-1A
     Indication: MULTIPLE SCLEROSIS
     Route: 058
     Dates: start: 20091029

REACTIONS (8)
  - Headache [Not Recovered/Not Resolved]
  - Injection site urticaria [Not Recovered/Not Resolved]
  - Large intestine polyp [Recovered/Resolved]
  - Feeling abnormal [Not Recovered/Not Resolved]
  - Anaemia [Recovering/Resolving]
  - Pain [Not Recovered/Not Resolved]
  - Peripheral swelling [Unknown]
  - Myalgia [Not Recovered/Not Resolved]

NARRATIVE: CASE EVENT DATE: 2010
